FAERS Safety Report 5139678-6 (Version None)
Quarter: 2006Q4

REPORT INFORMATION
  Report Type: 
  Country: None (occurrence: None)
  Receive Date: 20061024
  Receipt Date: 20061009
  Transmission Date: 20070319
  Serious: Yes (Hospitalization, Other)
  Sender: FDA-Public Use
  Company Number: A-US2006-13119

PATIENT
  Age: 45 Year
  Sex: Female
  Weight: 45.5 kg

DRUGS (10)
  1. TRACLEER [Suspect]
     Indication: PULMONARY HYPERTENSION
     Dosage: 125 MG, BID, ORAL; SEE IMAGE
     Route: 048
     Dates: start: 20050509, end: 20050607
  2. TRACLEER [Suspect]
     Indication: PULMONARY HYPERTENSION
     Dosage: 125 MG, BID, ORAL; SEE IMAGE
     Route: 048
     Dates: start: 20050608, end: 20060911
  3. METHOTREXATE [Suspect]
     Indication: RHEUMATOID ARTHRITIS
     Dosage: 10 MG, Q1WEEK, ORAL; SEE IMAGE
     Route: 048
     Dates: start: 20060501, end: 20060807
  4. METHOTREXATE [Suspect]
     Indication: RHEUMATOID ARTHRITIS
     Dosage: 10 MG, Q1WEEK, ORAL; SEE IMAGE
     Route: 048
     Dates: start: 20060808, end: 20060815
  5. METHOTREXATE [Suspect]
     Indication: RHEUMATOID ARTHRITIS
     Dosage: 10 MG, Q1WEEK, ORAL; SEE IMAGE
     Route: 048
     Dates: start: 20060816, end: 20060906
  6. PREDNISOLONE [Concomitant]
  7. LOSEC (OMEPRAZOLE) [Concomitant]
  8. MULTIVITAMINS (RIBOFLAVIN, THIAMINE HYDROCHLORIDE, RETINOL, PANTHENOL, [Concomitant]
  9. FISH OIL (FISH OIL) [Concomitant]
  10. FOLIC ACID [Concomitant]

REACTIONS (7)
  - ARTHRALGIA [None]
  - CHOLELITHIASIS [None]
  - DRUG INTERACTION [None]
  - DRUG LEVEL CHANGED [None]
  - HEADACHE [None]
  - HEPATITIS ACUTE [None]
  - MALABSORPTION [None]
